FAERS Safety Report 8196984-9 (Version None)
Quarter: 2012Q1

REPORT INFORMATION
  Report Type: 
  Country: None (occurrence: None)
  Receive Date: 20120309
  Receipt Date: 20120228
  Transmission Date: 20120608
  Serious: Yes (Death, Life-Threatening, Hospitalization)
  Sender: FDA-Public Use
  Company Number: JP-AMGEN-JPNCT2011017267

PATIENT
  Age: 65 Year
  Sex: Male
  Weight: 47 kg

DRUGS (26)
  1. IRINOTECAN HCL [Suspect]
     Indication: COLORECTAL CANCER
     Dosage: 150 MG/M2, Q2WK
     Route: 041
     Dates: start: 20110303, end: 20110303
  2. ALINAMIN-F [Concomitant]
     Route: 048
  3. RABEPRAZOLE SODIUM [Concomitant]
     Route: 048
  4. PANITUMUMAB [Suspect]
     Dosage: 6 MG/KG, Q2WK
     Route: 041
     Dates: start: 20100930, end: 20110303
  5. FLUOROURACIL [Suspect]
     Dosage: 2400 MG/M2, Q2WK
     Route: 041
     Dates: start: 20100715, end: 20101027
  6. LEVOLEUCOVORIN CALCIUM [Concomitant]
     Indication: COLORECTAL CANCER
     Dosage: 200 MG/M2, Q2WK
     Route: 041
     Dates: start: 20100715, end: 20101027
  7. MAGNESIUM SULFATE [Concomitant]
     Dosage: UNK
     Route: 042
  8. OXYCONTIN [Concomitant]
     Route: 048
  9. FLUOROURACIL [Suspect]
     Dosage: 2400 MG/M2, Q2WK
     Route: 041
     Dates: start: 20101104, end: 20110217
  10. LEVOLEUCOVORIN CALCIUM [Concomitant]
     Dosage: 200 MG/M2, Q2WK
     Route: 041
     Dates: start: 20110303, end: 20110303
  11. FLUOROURACIL [Suspect]
     Dosage: 400 MG/M2, Q2WK
     Route: 040
     Dates: start: 20110303, end: 20110303
  12. OXALIPLATIN [Concomitant]
     Indication: COLORECTAL CANCER
     Dosage: 85 MG/M2, Q2WK
     Route: 041
     Dates: start: 20100715, end: 20101027
  13. LEVOLEUCOVORIN CALCIUM [Concomitant]
     Dosage: 200 MG/M2, Q2WK
     Route: 041
     Dates: start: 20101104, end: 20110217
  14. MAGMITT [Concomitant]
     Route: 048
  15. FENTANYL-100 [Concomitant]
     Route: 062
  16. PANITUMUMAB [Suspect]
     Indication: COLORECTAL CANCER
     Dosage: 6 MG/KG, Q2WK
     Route: 041
     Dates: start: 20100715, end: 20100902
  17. FLUOROURACIL [Suspect]
     Indication: COLORECTAL CANCER
     Dosage: 400 MG/M2, Q2WK
     Route: 040
     Dates: start: 20100715, end: 20101027
  18. FLUOROURACIL [Suspect]
     Dosage: 400 MG/M2, Q2WK
     Route: 040
     Dates: start: 20101104, end: 20110217
  19. CALCIUM CARBONATE [Concomitant]
     Dosage: UNK
     Route: 042
  20. FLUOROURACIL [Suspect]
     Dosage: 2400 MG/M2, Q2WK
     Route: 041
     Dates: start: 20110303, end: 20110303
  21. BESOFTEN [Concomitant]
     Dosage: UNK
     Route: 062
  22. KYTRIL [Concomitant]
     Dosage: UNK
     Route: 042
  23. PROCHLORPERAZINE [Concomitant]
     Route: 048
  24. OXALIPLATIN [Concomitant]
     Dosage: 85 MG/M2, Q2WK
     Route: 041
     Dates: start: 20101104, end: 20110217
  25. DECADRON [Concomitant]
     Dosage: UNK
     Route: 042
  26. OXINORM [Concomitant]
     Route: 048

REACTIONS (5)
  - DERMATITIS [None]
  - COLORECTAL CANCER [None]
  - INTERSTITIAL LUNG DISEASE [None]
  - WHITE BLOOD CELL COUNT DECREASED [None]
  - DIARRHOEA [None]
